FAERS Safety Report 7744344-4 (Version None)
Quarter: 2011Q3

REPORT INFORMATION
  Report Type: 
  Country: None (occurrence: None)
  Receive Date: 20110912
  Receipt Date: 20110901
  Transmission Date: 20111222
  Serious: Yes (Hospitalization, Disabling, Other)
  Sender: FDA-Public Use
  Company Number: US-ASTRAZENECA-2006UW15406

PATIENT
  Age: 40 Year
  Sex: Male
  Weight: 99.8 kg

DRUGS (15)
  1. SEROQUEL [Suspect]
     Indication: GENERALISED ANXIETY DISORDER
     Route: 048
     Dates: start: 20030101, end: 20061001
  2. SEROQUEL [Suspect]
     Route: 048
     Dates: start: 20050101, end: 20060101
  3. DEPAKOTE [Concomitant]
     Route: 048
     Dates: start: 20040303
  4. SEROQUEL [Suspect]
     Route: 048
     Dates: start: 20050101, end: 20060101
  5. SEROQUEL [Suspect]
     Route: 048
     Dates: start: 20050101, end: 20060101
  6. TOXIPEN [Concomitant]
  7. SEROQUEL [Suspect]
     Route: 048
     Dates: start: 20050101, end: 20060101
  8. SEROQUEL [Suspect]
     Indication: AFFECTIVE DISORDER
     Route: 048
     Dates: start: 20030101, end: 20061001
  9. ZYPREXA [Concomitant]
     Route: 048
     Dates: start: 20040504
  10. SEROQUEL [Suspect]
     Indication: SLEEP DISORDER
     Route: 048
     Dates: start: 20030101, end: 20061001
  11. SEROQUEL [Suspect]
     Indication: ANXIETY
     Route: 048
     Dates: start: 20030101, end: 20061001
  12. SEROQUEL [Suspect]
     Route: 048
     Dates: start: 20050101, end: 20060101
  13. SEROQUEL [Suspect]
     Indication: DEPRESSION
     Route: 048
     Dates: start: 20030101, end: 20061001
  14. CYMBALTA [Concomitant]
     Route: 048
     Dates: start: 20040413
  15. AMBIEN [Concomitant]

REACTIONS (6)
  - FEELING ABNORMAL [None]
  - DRUG DOSE OMISSION [None]
  - ASPIRATION [None]
  - PHARYNGEAL DYSKINESIA [None]
  - DYSPHAGIA [None]
  - INSOMNIA [None]
